FAERS Safety Report 8375485-9 (Version None)
Quarter: 2012Q2

REPORT INFORMATION
  Report Type: 
  Country: None (occurrence: None)
  Receive Date: 20120518
  Receipt Date: 20120518
  Transmission Date: 20120825
  Serious: Yes (Hospitalization)
  Sender: FDA-Public Use
  Company Number: None

PATIENT
  Sex: Male
  Weight: 68.0396 kg

DRUGS (6)
  1. TYLENOL [Concomitant]
  2. CLOZAPINE [Suspect]
     Indication: BIPOLAR DISORDER
     Dosage: 300 MG MORNING AFTERNOON
  3. ABILIFY [Suspect]
     Indication: DEPRESSION
     Dosage: ALERGIC DONT TAKE
  4. VISPRIL [Concomitant]
  5. VEPREMIL [Concomitant]
  6. DEPAKOTE [Concomitant]

REACTIONS (6)
  - URINARY TRACT DISORDER [None]
  - MANIA [None]
  - CONFUSIONAL STATE [None]
  - TREMOR [None]
  - GASTRIC DISORDER [None]
  - SCREAMING [None]
